FAERS Safety Report 14434077 (Version 1)
Quarter: 2018Q1

REPORT INFORMATION
  Report Type: Spontaneous
  Country: US (occurrence: US)
  Receive Date: 20180124
  Receipt Date: 20180124
  Transmission Date: 20180509
  Serious: Yes (Hospitalization)
  Sender: FDA-Public Use
  Company Number: US-ABBVIE-17K-163-1847414-00

PATIENT
  Sex: Female
  Weight: 49.03 kg

DRUGS (1)
  1. HUMIRA [Suspect]
     Active Substance: ADALIMUMAB
     Indication: RHEUMATOID ARTHRITIS
     Route: 058
     Dates: start: 2016

REACTIONS (3)
  - Urinary tract infection [Recovered/Resolved]
  - Gait disturbance [Unknown]
  - Arthralgia [Unknown]

NARRATIVE: CASE EVENT DATE: 2016
